FAERS Safety Report 19102096 (Version 4)
Quarter: 2021Q2

REPORT INFORMATION
  Report Type: Spontaneous
  Country: None (occurrence: RU)
  Receive Date: 20210407
  Receipt Date: 20210427
  Transmission Date: 20210717
  Serious: Yes (Other)
  Sender: FDA-Public Use
  Company Number: RU-ASTELLAS-2021US011623

PATIENT
  Age: 57 Year
  Sex: Male

DRUGS (2)
  1. XTANDI [Suspect]
     Active Substance: ENZALUTAMIDE
     Indication: HORMONE-DEPENDENT PROSTATE CANCER
     Dosage: 160 MG, ONCE DAILY (4 CAPSULES ONCE A DAY FOR 12 MONTHS)
     Route: 048
     Dates: start: 20201209
  2. BUSERELINUM [Concomitant]
     Indication: HORMONE-DEPENDENT PROSTATE CANCER
     Dosage: UNK UNK, MONTHLY (EVERY MONTH, 1 TIME IN 28 DAYS)
     Route: 065
     Dates: start: 2018

REACTIONS (2)
  - Drug ineffective for unapproved indication [Unknown]
  - Prostatic specific antigen increased [Not Recovered/Not Resolved]

NARRATIVE: CASE EVENT DATE: 20201209
